FAERS Safety Report 6419000-5 (Version None)
Quarter: 2009Q4

REPORT INFORMATION
  Report Type: 
  Country: None (occurrence: None)
  Receive Date: 20091028
  Receipt Date: 20091028
  Transmission Date: 20100525
  Serious: Yes (Hospitalization)
  Sender: FDA-Public Use
  Company Number: None

PATIENT
  Age: 63 Year
  Sex: Female
  Weight: 62.9 kg

DRUGS (3)
  1. SORAFENIB- 200 MG BID-ORAL [Suspect]
     Indication: PANCREATIC CARCINOMA METASTATIC
     Dosage: ORAL-DAILY-28 DAY CYCLE
     Route: 048
  2. OXALIPLATIN- 85MG/M^2-IV [Suspect]
     Dosage: IV- ON DAYS 1+15
     Route: 042
     Dates: start: 20091008
  3. CAPECITABINE [Concomitant]

REACTIONS (2)
  - ABDOMINAL PAIN [None]
  - BACK PAIN [None]
